FAERS Safety Report 12358549 (Version 1)
Quarter: 2016Q2

REPORT INFORMATION
  Report Type: Spontaneous
  Country: GB (occurrence: GB)
  Receive Date: 20160512
  Receipt Date: 20160512
  Transmission Date: 20160815
  Serious: Yes (Other)
  Sender: FDA-Public Use
  Company Number: GB-BAXTER-2016BAX023206

PATIENT
  Age: 43 Year
  Sex: Female

DRUGS (3)
  1. METHYLPREDNISOLONE. [Suspect]
     Active Substance: METHYLPREDNISOLONE
     Indication: ANTIPHOSPHOLIPID SYNDROME
     Dosage: THREE DOSES
     Route: 042
  2. CYCLOPHOSPHAMIDE INJECTION 1G [Suspect]
     Active Substance: CYCLOPHOSPHAMIDE
     Indication: ANTIPHOSPHOLIPID SYNDROME
     Route: 065
  3. WARFARIN [Concomitant]
     Active Substance: WARFARIN
     Indication: AXILLARY VEIN THROMBOSIS
     Route: 065

REACTIONS (2)
  - No therapeutic response [Unknown]
  - Drug intolerance [Unknown]
